FAERS Safety Report 6841779-9 (Version None)
Quarter: 2010Q3

REPORT INFORMATION
  Report Type: 
  Country: None (occurrence: None)
  Receive Date: 20100714
  Receipt Date: 20100709
  Transmission Date: 20110219
  Serious: Yes (Other)
  Sender: FDA-Public Use
  Company Number: US-AMGEN-QUU423468

PATIENT
  Sex: Male

DRUGS (2)
  1. NPLATE [Suspect]
     Indication: IDIOPATHIC THROMBOCYTOPENIC PURPURA
     Dates: start: 20100101, end: 20100101
  2. PROMACTA [Concomitant]
     Route: 048
     Dates: start: 20100501

REACTIONS (3)
  - EYE IRRITATION [None]
  - FATIGUE [None]
  - OCULAR HYPERAEMIA [None]
